FAERS Safety Report 7420921-5 (Version None)
Quarter: 2011Q2

REPORT INFORMATION
  Report Type: 
  Country: None (occurrence: None)
  Receive Date: 20110418
  Receipt Date: 20110411
  Transmission Date: 20111010
  Serious: Yes (Other)
  Sender: FDA-Public Use
  Company Number: B0712327A

PATIENT
  Sex: Female

DRUGS (5)
  1. LAMICTAL [Suspect]
     Dosage: 450MG TWICE PER DAY
     Route: 048
     Dates: start: 20110406
  2. LAMICTAL [Suspect]
     Dosage: 450MG TWICE PER DAY
     Route: 048
     Dates: start: 20110401
  3. HRT [Concomitant]
  4. LAMICTAL [Suspect]
     Indication: TEMPORAL LOBE EPILEPSY
     Dosage: 450MG TWICE PER DAY
     Route: 048
     Dates: start: 20110201, end: 20110406
  5. KEPPRA [Concomitant]
     Dosage: 250MG PER DAY

REACTIONS (10)
  - MIDDLE INSOMNIA [None]
  - PETIT MAL EPILEPSY [None]
  - VERTIGO [None]
  - VOMITING [None]
  - SLOW RESPONSE TO STIMULI [None]
  - DIZZINESS [None]
  - EPILEPSY [None]
  - BALANCE DISORDER [None]
  - SLEEP DISORDER [None]
  - NAUSEA [None]
